FAERS Safety Report 13747447 (Version 1)
Quarter: 2017Q3

REPORT INFORMATION
  Report Type: Spontaneous
  Country: US (occurrence: US)
  Receive Date: 20170712
  Receipt Date: 20170712
  Transmission Date: 20171127
  Serious: Yes (Other)
  Sender: FDA-Public Use
  Company Number: US-ALLERGAN-1728408US

PATIENT
  Age: 68 Year
  Sex: Female
  Weight: 97.52 kg

DRUGS (2)
  1. OXYBUTYNIN UNK [Suspect]
     Active Substance: OXYBUTYNIN
     Indication: PRODUCT USED FOR UNKNOWN INDICATION
     Dosage: UNK
  2. LYRICA [Suspect]
     Active Substance: PREGABALIN
     Indication: NEUROPATHY PERIPHERAL
     Dosage: 100 MG, TID
     Route: 048

REACTIONS (3)
  - Coronary artery occlusion [Unknown]
  - Drug ineffective [Unknown]
  - Vascular occlusion [Recovering/Resolving]

NARRATIVE: CASE EVENT DATE: 2017
